FAERS Safety Report 9225577 (Version 1)
Quarter: 2013Q2

REPORT INFORMATION
  Report Type: Report from Study
  Country: BR (occurrence: BR)
  Receive Date: 20130411
  Receipt Date: 20130411
  Transmission Date: 20140414
  Serious: Yes (Other)
  Sender: FDA-Public Use
  Company Number: BR-ROCHE-1210746

PATIENT
  Sex: Male
  Weight: 73 kg

DRUGS (8)
  1. ACTEMRA [Suspect]
     Indication: RHEUMATOID ARTHRITIS
     Route: 065
  2. ACTEMRA [Suspect]
     Dosage: FOURTH INFUSION
     Route: 065
     Dates: start: 201303
  3. OMEPRAZOLE [Concomitant]
  4. LOSARTAN [Concomitant]
  5. PREDNISONE [Concomitant]
     Route: 065
  6. ATROPINE [Concomitant]
  7. IBUPROFEN [Concomitant]
  8. SIMVASTATIN [Concomitant]
     Route: 065

REACTIONS (4)
  - Urinary tract infection [Unknown]
  - Sinusitis [Unknown]
  - Drug ineffective [Unknown]
  - Finger deformity [Unknown]
